FAERS Safety Report 4538619-X (Version None)
Quarter: 2004Q4

REPORT INFORMATION
  Report Type: 
  Country: None (occurrence: None)
  Receive Date: 20041227
  Receipt Date: 20041220
  Transmission Date: 20050328
  Serious: Yes (Life-Threatening, Hospitalization, Disabling)
  Sender: FDA-Public Use
  Company Number: GB-BRISTOL-MYERS SQUIBB COMPANY-12799672

PATIENT
  Age: 65 Year
  Sex: Female
  Weight: 100 kg

DRUGS (6)
  1. PRAVASTATIN SODIUM [Suspect]
     Indication: LIPIDS INCREASED
     Route: 048
     Dates: end: 20041201
  2. METFORMIN HCL [Concomitant]
     Route: 048
  3. THYROXINE [Concomitant]
     Route: 048
  4. DOTHIEPIN HYDROCHLORIDE [Concomitant]
     Route: 048
  5. ASPIRIN [Concomitant]
     Route: 048
  6. LISINOPRIL [Concomitant]
     Route: 048

REACTIONS (3)
  - HEPATITIS [None]
  - MULTI-ORGAN FAILURE [None]
  - PANCREATITIS [None]
